FAERS Safety Report 8784243 (Version 2)
Quarter: 2013Q2

REPORT INFORMATION
  Report Type: Spontaneous
  Country: US (occurrence: US)
  Receive Date: 20120913
  Receipt Date: 20130410
  Transmission Date: 20140414
  Serious: Yes (Other)
  Sender: FDA-Public Use
  Company Number: US-BAYER-2012-094984

PATIENT
  Age: 78 Year
  Sex: Female
  Weight: 50.79 kg

DRUGS (1)
  1. BAYER ADVANCED ASPIRIN EXTRA STRENGTH [Suspect]
     Indication: ARTHRALGIA
     Dosage: 1 DF, PRN
     Route: 048
     Dates: start: 20120704, end: 20120907

REACTIONS (8)
  - Pharyngeal oedema [Not Recovered/Not Resolved]
  - Dysphagia [Recovered/Resolved]
  - Burn of internal organs [Recovering/Resolving]
  - Retching [Recovered/Resolved]
  - Dysgeusia [Recovering/Resolving]
  - Aphagia [Recovered/Resolved]
  - Product solubility abnormal [None]
  - Oral discomfort [Recovering/Resolving]
